FAERS Safety Report 6114254-7 (Version None)
Quarter: 2009Q1

REPORT INFORMATION
  Report Type: 
  Country: None (occurrence: None)
  Receive Date: 20090312
  Receipt Date: 20080925
  Transmission Date: 20090719
  Serious: No
  Sender: FDA-Public Use
  Company Number: US-ABBOTT-08P-163-0478796-00

PATIENT
  Sex: Male

DRUGS (3)
  1. DEPAKOTE [Suspect]
     Indication: AFFECTIVE DISORDER
     Route: 048
     Dates: start: 20080923
  2. DEPAKOTE [Suspect]
     Route: 048
     Dates: start: 20080611, end: 20080922
  3. RISPERDAL [Concomitant]
     Indication: AFFECTIVE DISORDER
     Route: 048
     Dates: start: 20080611

REACTIONS (1)
  - HYPERCALCAEMIA [None]
